FAERS Safety Report 5060479-1 (Version None)
Quarter: 2006Q2

REPORT INFORMATION
  Report Type: 
  Country: None (occurrence: None)
  Receive Date: 20060630
  Receipt Date: 20050613
  Transmission Date: 20061013
  Serious: Yes (Other)
  Sender: FDA-Public Use
  Company Number: VISP-PR-0506S-0338

PATIENT
  Sex: Female

DRUGS (1)
  1. VISIPAQUE [Suspect]
     Indication: DRUG USE FOR UNKNOWN INDICATION
     Dosage: , SINGLE DOSE, I.A.
     Route: 013
     Dates: start: 20050610, end: 20050610

REACTIONS (1)
  - CORONARY ARTERY THROMBOSIS [None]
